FAERS Safety Report 9772733 (Version 1)
Quarter: 2013Q4

REPORT INFORMATION
  Report Type: Spontaneous
  Country: US (occurrence: US)
  Receive Date: 20131219
  Receipt Date: 20131219
  Transmission Date: 20140711
  Serious: No
  Sender: FDA-Public Use
  Company Number: US-PFIZER INC-2013363074

PATIENT
  Age: 50 Year
  Sex: Female
  Weight: 134 kg

DRUGS (2)
  1. LYRICA [Suspect]
     Indication: FIBROMYALGIA
     Dosage: 150 MG, 2X/DAY
     Route: 048
     Dates: start: 201110, end: 201201
  2. LYRICA [Suspect]
     Dosage: UNK
     Dates: start: 201201

REACTIONS (4)
  - Weight increased [Unknown]
  - Pain [Unknown]
  - Pre-existing condition improved [Unknown]
  - Therapeutic response unexpected [Unknown]
